FAERS Safety Report 7652477-6 (Version None)
Quarter: 2011Q3

REPORT INFORMATION
  Report Type: 
  Country: None (occurrence: None)
  Receive Date: 20110728
  Receipt Date: 20110713
  Transmission Date: 20111222
  Serious: Yes (Death, Hospitalization)
  Sender: FDA-Public Use
  Company Number: ALP-11-04

PATIENT
  Age: 18 Year
  Sex: Female

DRUGS (4)
  1. DIAMORPHINE [Concomitant]
  2. ALCOHOL [Concomitant]
  3. COCAINE [Concomitant]
  4. ALPRAZOLAM [Suspect]
     Indication: PRODUCT USED FOR UNKNOWN INDICATION

REACTIONS (7)
  - CHEST DISCOMFORT [None]
  - ALCOHOL ABUSE [None]
  - TINNITUS [None]
  - HEADACHE [None]
  - OVERDOSE [None]
  - DEAFNESS NEUROSENSORY [None]
  - SUBSTANCE ABUSE [None]
